FAERS Safety Report 7640573-9 (Version None)
Quarter: 2011Q3

REPORT INFORMATION
  Report Type: 
  Country: None (occurrence: None)
  Receive Date: 20110728
  Receipt Date: 20110718
  Transmission Date: 20111222
  Serious: No
  Sender: FDA-Public Use
  Company Number: US-BIOGENIDEC-2011BI026608

PATIENT
  Age: 42 Year
  Sex: Male

DRUGS (1)
  1. AVONEX [Suspect]
     Indication: MULTIPLE SCLEROSIS
     Route: 030
     Dates: start: 20060325

REACTIONS (9)
  - MUSCULOSKELETAL PAIN [None]
  - ARTHRALGIA [None]
  - HYPOAESTHESIA [None]
  - OCULAR HYPERAEMIA [None]
  - OEDEMA PERIPHERAL [None]
  - ARTHRITIS [None]
  - NECK PAIN [None]
  - EYE PRURITUS [None]
  - PAIN IN EXTREMITY [None]
